FAERS Safety Report 4655983-1 (Version None)
Quarter: 2005Q2

REPORT INFORMATION
  Report Type: 
  Country: None (occurrence: None)
  Receive Date: 20050505
  Receipt Date: 20050429
  Transmission Date: 20051028
  Serious: Yes (Death, Hospitalization)
  Sender: FDA-Public Use
  Company Number: STA-AE-05-011

PATIENT
  Age: 79 Year
  Sex: Female

DRUGS (8)
  1. DILTIAZEM [Suspect]
     Dosage: 180 MG PER DAY
  2. SIMVASTATIN [Suspect]
     Dosage: 60 MG PER DAY
  3. WARFARIN [Concomitant]
  4. ISOSORBIDE MONONITRATE [Concomitant]
  5. FUROSEMIDE [Concomitant]
  6. PERHEXILINE [Concomitant]
  7. ATENOLOL [Concomitant]
  8. PANTOPRAZOLE [Concomitant]

REACTIONS (4)
  - CARDIAC FAILURE [None]
  - DIALYSIS [None]
  - RENAL FAILURE ACUTE [None]
  - RHABDOMYOLYSIS [None]
